FAERS Safety Report 8867175 (Version 1)
Quarter: 2012Q4

REPORT INFORMATION
  Report Type: 
  Country: US (occurrence: US)
  Receive Date: 20121025
  Receipt Date: 20121025
  Transmission Date: 20130627
  Serious: No
  Sender: FDA-Public Use
  Company Number: US-AMGEN-USASP2012015105

PATIENT
  Age: 50 Year
  Sex: Female
  Weight: 63.49 kg

DRUGS (6)
  1. ENBREL [Suspect]
     Indication: PRODUCT USED FOR UNKNOWN INDICATION
     Dosage: 50 mg, qwk
     Route: 058
  2. SYNTHROID [Concomitant]
     Dosage: 112 mug, UNK
  3. OMNARIS [Concomitant]
     Dosage: UNK
  4. PRILOSEC                           /00661201/ [Concomitant]
     Dosage: 10 mg, UNK
  5. MULTIVITAMIN                       /00097801/ [Concomitant]
     Dosage: UNK
  6. TYLENOL /00020001/ [Concomitant]
     Dosage: 325 mg, UNK

REACTIONS (2)
  - Headache [Not Recovered/Not Resolved]
  - Sinusitis [Recovered/Resolved]
